FAERS Safety Report 10847322 (Version 1)
Quarter: 2015Q1

REPORT INFORMATION
  Report Type: Spontaneous
  Country: US (occurrence: US)
  Receive Date: 20150220
  Receipt Date: 20150220
  Transmission Date: 20150721
  Serious: No
  Sender: FDA-Public Use
  Company Number: US-PFIZER INC-2015063092

PATIENT

DRUGS (12)
  1. KLONOPIN [Suspect]
     Active Substance: CLONAZEPAM
     Dosage: UNK
  2. TEGRETOL [Suspect]
     Active Substance: CARBAMAZEPINE
     Dosage: UNK
  3. HYDROCODONE [Suspect]
     Active Substance: HYDROCODONE
     Dosage: UNK
  4. DOXEPIN HCL [Suspect]
     Active Substance: DOXEPIN HYDROCHLORIDE
     Dosage: UNK
  5. CODEINE [Suspect]
     Active Substance: CODEINE
     Dosage: UNK
  6. FLONASE [Suspect]
     Active Substance: FLUTICASONE PROPIONATE
     Dosage: UNK
  7. LEVAQUIN [Suspect]
     Active Substance: LEVOFLOXACIN
     Dosage: UNK
  8. ALBUTEROL. [Suspect]
     Active Substance: ALBUTEROL
     Dosage: UNK
  9. ZITHROMAX [Suspect]
     Active Substance: AZITHROMYCIN DIHYDRATE
     Dosage: UNK
  10. FURACIN [Suspect]
     Active Substance: NITROFURAZONE
     Dosage: UNK
  11. DILANTIN [Suspect]
     Active Substance: PHENYTOIN
     Dosage: UNK
  12. PARAFON FORTE [Suspect]
     Active Substance: CHLORZOXAZONE
     Dosage: UNK

REACTIONS (1)
  - Drug hypersensitivity [Unknown]
